FAERS Safety Report 13231976 (Version 1)
Quarter: 2017Q1

REPORT INFORMATION
  Report Type: Report from Study
  Country: CA (occurrence: CA)
  Receive Date: 20170214
  Receipt Date: 20170214
  Transmission Date: 20170428
  Serious: Yes (Hospitalization)
  Sender: FDA-Public Use
  Company Number: CA-SA-2017SA019432

PATIENT
  Age: 13 Year
  Sex: Female

DRUGS (4)
  1. DINUTUXIMAB [Concomitant]
     Active Substance: DINUTUXIMAB
     Dates: start: 20170124, end: 20170127
  2. TEMOZOLOMIDE. [Concomitant]
     Active Substance: TEMOZOLOMIDE
     Dates: start: 20170123, end: 20170127
  3. GM-CSF [Suspect]
     Active Substance: GRANULOCYTE-MACROPHAGE COLONY-STIMULATING FACTOR
     Indication: NEUROBLASTOMA
     Route: 058
     Dates: start: 20170128, end: 20170129
  4. IRINOTECAN [Concomitant]
     Active Substance: IRINOTECAN
     Dates: start: 20170123, end: 20170127

REACTIONS (2)
  - Angioedema [Recovered/Resolved]
  - Off label use [Unknown]

NARRATIVE: CASE EVENT DATE: 20170129
